FAERS Safety Report 15955445 (Version 2)
Quarter: 2019Q2

REPORT INFORMATION
  Report Type: Spontaneous
  Country: US (occurrence: US)
  Receive Date: 20190213
  Receipt Date: 20190405
  Transmission Date: 20190711
  Serious: Yes (Hospitalization, Other)
  Sender: FDA-Public Use
  Company Number: US-PFIZER INC-2018253459

PATIENT
  Age: 65 Year
  Sex: Female
  Weight: 85.26 kg

DRUGS (1)
  1. IBRANCE [Suspect]
     Active Substance: PALBOCICLIB
     Indication: BREAST CANCER METASTATIC
     Dosage: 125 MG, CYCLIC [ONCE DAY 21 DAYS ON AND 7 DAYS OFF]
     Route: 048

REACTIONS (7)
  - Renal impairment [Unknown]
  - Condition aggravated [Recovered/Resolved]
  - Hypokinesia [Unknown]
  - Dehydration [Recovering/Resolving]
  - Thrombocytopenia [Unknown]
  - Alopecia [Not Recovered/Not Resolved]
  - Diarrhoea [Recovered/Resolved]

NARRATIVE: CASE EVENT DATE: 201901
